FAERS Safety Report 4482302-6 (Version None)
Quarter: 2004Q4

REPORT INFORMATION
  Report Type: 
  Country: None (occurrence: None)
  Receive Date: 20041020
  Receipt Date: 20041012
  Transmission Date: 20050328
  Serious: Yes (Hospitalization, Other)
  Sender: FDA-Public Use
  Company Number: 2004076888

PATIENT
  Age: 61 Year
  Sex: Male

DRUGS (1)
  1. TAHOR (ATORVASTATIN) [Suspect]
     Indication: HYPERCHOLESTEROLAEMIA

REACTIONS (8)
  - ANKYLOSING SPONDYLITIS [None]
  - ARTHROPATHY [None]
  - CARDIAC MURMUR [None]
  - ENDOCARDITIS [None]
  - INFLAMMATION [None]
  - MULTIPLE MYELOMA [None]
  - MUSCULAR WEAKNESS [None]
  - WEIGHT DECREASED [None]
